FAERS Safety Report 6860734-6 (Version None)
Quarter: 2010Q3

REPORT INFORMATION
  Report Type: 
  Country: None (occurrence: None)
  Receive Date: 20100720
  Receipt Date: 20100712
  Transmission Date: 20110219
  Serious: Yes (Life-Threatening)
  Sender: FDA-Public Use
  Company Number: GXKR2010ES06960

PATIENT
  Age: 52 Year
  Sex: Male

DRUGS (8)
  1. ATROPINE (NGX) [Suspect]
     Indication: GENERAL ANAESTHESIA
     Route: 065
  2. SUCCINYLCHOLINE CHLORIDE [Suspect]
     Indication: GENERAL ANAESTHESIA
     Route: 065
  3. NEOSTIGMINE (NGX) [Suspect]
     Indication: GENERAL ANAESTHESIA
     Route: 065
  4. METRONIDAZOLE [Suspect]
     Indication: ANTIBIOTIC THERAPY
     Dosage: UNK
     Route: 065
  5. SEVOFLURANE [Suspect]
     Indication: GENERAL ANAESTHESIA
     Route: 065
  6. PROPOFOL [Concomitant]
     Indication: GENERAL ANAESTHESIA
  7. ROCURONIUM BROMIDE [Concomitant]
     Indication: GENERAL ANAESTHESIA
  8. FENTANYL [Concomitant]
     Indication: GENERAL ANAESTHESIA

REACTIONS (9)
  - CARDIAC PACEMAKER INSERTION [None]
  - CARDIO-RESPIRATORY ARREST [None]
  - CARDIOVERSION [None]
  - LONG QT SYNDROME [None]
  - RESUSCITATION [None]
  - TORSADE DE POINTES [None]
  - VENTRICULAR ARRHYTHMIA [None]
  - VENTRICULAR FIBRILLATION [None]
  - VENTRICULAR TACHYCARDIA [None]
